FAERS Safety Report 18206492 (Version 1)
Quarter: 2020Q3

REPORT INFORMATION
  Report Type: Spontaneous
  Country: FR (occurrence: FR)
  Receive Date: 20200828
  Receipt Date: 20200828
  Transmission Date: 20201103
  Serious: Yes (Other)
  Sender: FDA-Public Use
  Company Number: NVSC2020FR237084

PATIENT
  Age: 39 Year
  Sex: Female

DRUGS (2)
  1. DABRAFENIB [Suspect]
     Active Substance: DABRAFENIB
     Indication: METASTATIC MALIGNANT MELANOMA
     Dosage: 150 MG, QD
     Route: 065
  2. TRAMETINIB [Suspect]
     Active Substance: TRAMETINIB
     Indication: METASTATIC MALIGNANT MELANOMA
     Dosage: 2 MG, QD
     Route: 065

REACTIONS (12)
  - Eosinophilia [Unknown]
  - Pyrexia [Unknown]
  - Enanthema [Unknown]
  - Diarrhoea [Unknown]
  - Face oedema [Unknown]
  - Rash maculo-papular [Unknown]
  - Cholestasis [Unknown]
  - Drug reaction with eosinophilia and systemic symptoms [Unknown]
  - Eye pain [Unknown]
  - Nausea [Unknown]
  - Fatigue [Unknown]
  - Hepatocellular injury [Unknown]
